FAERS Safety Report 13012291 (Version 16)
Quarter: 2020Q1

REPORT INFORMATION
  Report Type: Spontaneous
  Country: US (occurrence: US)
  Receive Date: 20161209
  Receipt Date: 20200326
  Transmission Date: 20200409
  Serious: Yes (Hospitalization, Disabling, Other)
  Sender: FDA-Public Use
  Company Number: US-PFIZER INC-2016566849

PATIENT
  Age: 56 Year
  Sex: Female
  Weight: 74.38 kg

DRUGS (37)
  1. DILTIAZEM XR [Concomitant]
     Active Substance: DILTIAZEM
     Indication: OESOPHAGEAL ACHALASIA
     Dosage: 120 MG, AS NEEDED (1 CAPSULE DAILY)
     Dates: start: 201709
  2. SUCRALFATE. [Concomitant]
     Active Substance: SUCRALFATE
     Dosage: 1 G, AS NEEDED [FOUR TIMES A DAY TO BE DISSOLVED IN 10ML OF WATER]
     Route: 048
  3. GENOTROPIN MQ [Suspect]
     Active Substance: SOMATROPIN
     Dosage: 1 MG, DAILY
     Route: 058
  4. KLONOPIN [Concomitant]
     Active Substance: CLONAZEPAM
     Indication: ANXIETY
     Dosage: 1 MG, AS NEEDED (EITHER ONE OR TWO TIMES A DAY)
     Route: 048
  5. T4 T3 [Concomitant]
     Indication: THYROID DISORDER
     Dosage: UNK, [LEVOTHYROXINE SODIUM 75MCG]-[LIOTHYRONINE 10 MCG]
     Dates: start: 2017
  6. GENOTROPIN MQ [Suspect]
     Active Substance: SOMATROPIN
     Indication: HYPOTHALAMO-PITUITARY DISORDER
     Dosage: 0.8 MG, 1X/DAY (INJECTED)(SHOT)
     Dates: start: 1996
  7. OXYCODONE [Concomitant]
     Active Substance: OXYCODONE
     Indication: MIGRAINE
     Dosage: UNK UNK, AS NEEDED (10-325MG)
     Route: 048
  8. VITAMIN B12 [Concomitant]
     Active Substance: CYANOCOBALAMIN
     Indication: VITAMIN B12 DEFICIENCY
     Dosage: 1000 UG, WEEKLY (SHOT)
     Dates: start: 2014
  9. GABAPENTIN. [Concomitant]
     Active Substance: GABAPENTIN
     Indication: MIGRAINE
     Dosage: 300 MG, DAILY, (TAKES 3 DAILY)
  10. PROGESTERONE. [Concomitant]
     Active Substance: PROGESTERONE
     Indication: HORMONE REPLACEMENT THERAPY
     Dosage: 100 MG, UNK
  11. DEXILANT [Concomitant]
     Active Substance: DEXLANSOPRAZOLE
     Indication: GASTROOESOPHAGEAL REFLUX DISEASE
     Dosage: 60 MG, DAILY
     Dates: start: 2010
  12. CLONAZEPAM. [Concomitant]
     Active Substance: CLONAZEPAM
     Indication: NERVE INJURY
     Dosage: 1 MG, 3X/DAY
  13. ACETAMINOPHEN W/OXYCODONE [Concomitant]
     Active Substance: ACETAMINOPHEN\OXYCODONE HYDROCHLORIDE
     Indication: MIGRAINE
     Dosage: UNK, [OXYCODONE HYDROCHLORIDE 10]-[PARACETAMOL 325]
  14. OMEPRAZOLE. [Concomitant]
     Active Substance: OMEPRAZOLE
     Dosage: UNK
  15. GENOTROPIN MQ [Suspect]
     Active Substance: SOMATROPIN
     Dosage: 0.8 MG, DAILY
  16. GENOTROPIN MQ [Suspect]
     Active Substance: SOMATROPIN
     Dosage: 1 MG, DAILY
     Dates: start: 20050517
  17. GENOTROPIN MQ [Suspect]
     Active Substance: SOMATROPIN
     Dosage: 1 MG, 1X/DAY (IN THE STOMACH EVERY NIGHT)
     Route: 058
  18. KLONOPIN [Concomitant]
     Active Substance: CLONAZEPAM
     Dosage: 1 MG, 3X/DAY
     Route: 048
  19. NITROGLYCERIN. [Concomitant]
     Active Substance: NITROGLYCERIN
     Indication: OESOPHAGEAL DISORDER
     Dosage: 0.4 MG, AS NEEDED
     Route: 060
     Dates: start: 201710
  20. PROMETHAZINE [Concomitant]
     Active Substance: PROMETHAZINE HYDROCHLORIDE
     Indication: OESOPHAGEAL ACHALASIA
     Dosage: 25 MG, UNK
  21. GENOTROPIN MQ [Suspect]
     Active Substance: SOMATROPIN
     Dosage: 0.6 MG, DAILY
  22. GENOTROPIN MQ [Suspect]
     Active Substance: SOMATROPIN
     Dosage: 1 MG, 1X/DAY (INJECTION IN HER STOMACH)
  23. GENOTROPIN MQ [Suspect]
     Active Substance: SOMATROPIN
     Dosage: 1 MG, DAILY(1MG MINIQUICK DAILY)
     Dates: start: 20120328
  24. VITAMIN D2 [Concomitant]
     Active Substance: ERGOCALCIFEROL
     Indication: VITAMIN D DEFICIENCY
     Dosage: 50000 IU, WEEKLY
     Dates: start: 2012
  25. GENOTROPIN MQ [Suspect]
     Active Substance: SOMATROPIN
     Dosage: 1 MG, 1X/DAY
  26. ARMOUR THYROID [Concomitant]
     Active Substance: THYROID, PORCINE
     Indication: SECONDARY HYPOTHYROIDISM
     Dosage: UNK
  27. TESTOSTERONE. [Concomitant]
     Active Substance: TESTOSTERONE
     Indication: HORMONE REPLACEMENT THERAPY
     Dosage: UNK
  28. LINZESS [Concomitant]
     Active Substance: LINACLOTIDE
     Indication: CONSTIPATION
     Dosage: 290 MG, AS NEEDED
     Dates: start: 2011
  29. NORTRIPTYLINE HCL [Concomitant]
     Active Substance: NORTRIPTYLINE HYDROCHLORIDE
     Indication: FIBROMYALGIA
     Dosage: 50 MG, DAILY, (25MG, TAKES 2 DAILY)
  30. RANITIDINE. [Concomitant]
     Active Substance: RANITIDINE
     Indication: OESOPHAGEAL ACHALASIA
     Dosage: 300 MG, 1X/DAY (AT NIGHT)
     Dates: start: 2013
  31. SUMATRIPTAN. [Concomitant]
     Active Substance: SUMATRIPTAN
     Indication: MIGRAINE
     Dosage: 100 MG, AS NEEDED (UP TO 2 IN 24 HR PERIOD)
     Dates: start: 2017
  32. FISH OIL [Concomitant]
     Active Substance: FISH OIL
     Indication: SUPPLEMENTATION THERAPY
     Dosage: 300 MG, DAILY
     Dates: start: 2011
  33. GENOTROPIN MQ [Suspect]
     Active Substance: SOMATROPIN
     Dosage: 0.4 MG, DAILY
  34. ESTROGEN [Concomitant]
     Active Substance: ESTROGENS
     Indication: HORMONE REPLACEMENT THERAPY
     Dosage: UNK
  35. IMITREX [Concomitant]
     Active Substance: SUMATRIPTAN SUCCINATE
     Indication: MIGRAINE
     Dosage: UNK
  36. GABAPENTIN. [Concomitant]
     Active Substance: GABAPENTIN
     Dosage: 300 MG, 1X/DAY (THREE CAPSULES AT BEDTIME)
  37. LIDOCAINE. [Concomitant]
     Active Substance: LIDOCAINE
     Dosage: UNK, AS NEEDED, (20% 10ML EVERY HOURS AS NEEDED)
     Dates: start: 201709

REACTIONS (27)
  - Barrett^s oesophagus [Recovered/Resolved with Sequelae]
  - Oesophageal achalasia [Recovering/Resolving]
  - Influenza [Unknown]
  - Migraine [Not Recovered/Not Resolved]
  - Asthenia [Unknown]
  - Alveolar osteitis [Not Recovered/Not Resolved]
  - Condition aggravated [Unknown]
  - Condition aggravated [Not Recovered/Not Resolved]
  - Hot flush [Not Recovered/Not Resolved]
  - Vomiting [Not Recovered/Not Resolved]
  - Alopecia [Unknown]
  - Burning sensation [Unknown]
  - Headache [Unknown]
  - Iron deficiency [Unknown]
  - Plasma cell myeloma [Not Recovered/Not Resolved]
  - Drug ineffective [Unknown]
  - Tooth erosion [Unknown]
  - Fatigue [Recovering/Resolving]
  - Pain [Not Recovered/Not Resolved]
  - Bronchitis [Unknown]
  - Malaise [Not Recovered/Not Resolved]
  - Depression [Not Recovered/Not Resolved]
  - Secondary hypothyroidism [Not Recovered/Not Resolved]
  - Tooth fracture [Not Recovered/Not Resolved]
  - Dental caries [Not Recovered/Not Resolved]
  - Hypersomnia [Recovering/Resolving]
  - Exostosis [Not Recovered/Not Resolved]

NARRATIVE: CASE EVENT DATE: 2008
